FAERS Safety Report 20890741 (Version 1)
Quarter: 2022Q2

REPORT INFORMATION
  Report Type: Spontaneous
  Country: US (occurrence: US)
  Receive Date: 20220530
  Receipt Date: 20220530
  Transmission Date: 20220720
  Serious: No
  Sender: FDA-Public Use
  Company Number: US-TEVA-2022-US-2035430

PATIENT
  Age: 45 Year
  Sex: Female
  Weight: 56.7 kg

DRUGS (4)
  1. AJOVY [Suspect]
     Active Substance: FREMANEZUMAB-VFRM
     Indication: Migraine
     Dosage: FROM STRENGTH: 225/1.5 MG/ML
     Route: 065
     Dates: start: 20220413
  2. EMGALITY [Suspect]
     Active Substance: GALCANEZUMAB-GNLM
     Route: 065
     Dates: start: 202008, end: 2021
  3. RIZATRIPTAN [Concomitant]
     Active Substance: RIZATRIPTAN
  4. UBRELVY [Concomitant]
     Active Substance: UBROGEPANT

REACTIONS (2)
  - Heavy menstrual bleeding [Not Recovered/Not Resolved]
  - Menstruation irregular [Not Recovered/Not Resolved]

NARRATIVE: CASE EVENT DATE: 20200101
